FAERS Safety Report 9842916 (Version 3)
Quarter: 2014Q1

REPORT INFORMATION
  Report Type: Spontaneous
  Country: US (occurrence: US)
  Receive Date: 20140124
  Receipt Date: 20140214
  Transmission Date: 20141002
  Serious: Yes (Hospitalization, Other)
  Sender: FDA-Public Use
  Company Number: US-PFIZER INC-2014023506

PATIENT
  Age: 50 Year
  Sex: Female
  Weight: 89.8 kg

DRUGS (2)
  1. LYRICA [Suspect]
     Indication: FIBROMYALGIA
     Dosage: UNK, DAILY
     Dates: start: 201312, end: 2013
  2. LYRICA [Suspect]
     Dosage: UNK
     Dates: start: 201312, end: 201401

REACTIONS (3)
  - Kidney infection [Unknown]
  - Weight increased [Unknown]
  - Pain [Unknown]
